FAERS Safety Report 4598795-X (Version None)
Quarter: 2005Q1

REPORT INFORMATION
  Report Type: 
  Country: None (occurrence: None)
  Receive Date: 20050301
  Receipt Date: 20050301
  Transmission Date: 20050727
  Serious: Yes (Life-Threatening)
  Sender: FDA-Public Use
  Company Number: None

PATIENT
  Sex: Male

DRUGS (14)
  1. LINEZOLID 600 MG [Suspect]
     Indication: OSTEOMYELITIS
     Dosage: 600 MG BID ORAL
     Route: 048
     Dates: start: 20040918, end: 20040929
  2. LINEZOLID 600 MG [Suspect]
     Indication: STAPHYLOCOCCAL INFECTION
     Dosage: 600 MG BID ORAL
     Route: 048
     Dates: start: 20040918, end: 20040929
  3. OMEPRAZOLE [Concomitant]
  4. THIAMINE [Concomitant]
  5. POTASSIUM CHLORIDE [Concomitant]
  6. MULTI-VITAMIN [Concomitant]
  7. LACTULOSE [Concomitant]
  8. IPRATROPIUM BROMIDE [Concomitant]
  9. FUROSEMIDE [Concomitant]
  10. FOLIC ACID [Concomitant]
  11. FERROUS SULFATE TAB [Concomitant]
  12. EPO [Concomitant]
  13. ALBUTEROL [Concomitant]
  14. FLUCONAZOLE [Concomitant]

REACTIONS (1)
  - THROMBOCYTOPENIA [None]
